FAERS Safety Report 16569639 (Version 4)
Quarter: 2019Q3

REPORT INFORMATION
  Report Type: Report from Study
  Country: US (occurrence: US)
  Receive Date: 20190715
  Receipt Date: 20190918
  Transmission Date: 20191004
  Serious: Yes (Hospitalization, Other)
  Sender: FDA-Public Use
  Company Number: US-ROCHE-2245404

PATIENT
  Age: 68 Year
  Sex: Male
  Weight: 97.4 kg

DRUGS (11)
  1. AMIODARONE [Concomitant]
     Active Substance: AMIODARONE
  2. ARA-C [Concomitant]
     Active Substance: CYTARABINE
  3. DRONEDARONE [Concomitant]
     Active Substance: DRONEDARONE
     Route: 065
  4. AZACITIDINE. [Suspect]
     Active Substance: AZACITIDINE
     Indication: MYELODYSPLASTIC SYNDROME
     Route: 065
  5. IDARUBICIN [Concomitant]
     Active Substance: IDARUBICIN
  6. ELIQUIS [Concomitant]
     Active Substance: APIXABAN
     Route: 065
  7. ATEZOLIZUMAB. [Suspect]
     Active Substance: ATEZOLIZUMAB
     Indication: MYELODYSPLASTIC SYNDROME
     Route: 042
     Dates: start: 20190110
  8. GUADECITABINE [Suspect]
     Active Substance: GUADECITABINE
     Indication: MYELODYSPLASTIC SYNDROME
     Route: 058
     Dates: start: 20181224
  9. RED BLOOD CELLS, CONCENTRATED [Concomitant]
     Active Substance: HUMAN RED BLOOD CELL
  10. ROCEPHIN [Concomitant]
     Active Substance: CEFTRIAXONE SODIUM
  11. VIDAZA [Concomitant]
     Active Substance: AZACITIDINE

REACTIONS (4)
  - Febrile neutropenia [Not Recovered/Not Resolved]
  - Atrial fibrillation [Recovered/Resolved]
  - Dental caries [Unknown]
  - Atrial fibrillation [Unknown]

NARRATIVE: CASE EVENT DATE: 20190110
